FAERS Safety Report 11086774 (Version 1)
Quarter: 2015Q2

REPORT INFORMATION
  Report Type: Spontaneous
  Country: US (occurrence: US)
  Receive Date: 20150504
  Receipt Date: 20150504
  Transmission Date: 20150821
  Serious: Yes (Other)
  Sender: FDA-Public Use
  Company Number: US-JNJFOC-20150419158

PATIENT
  Age: 47 Year
  Sex: Female
  Weight: 61.24 kg

DRUGS (15)
  1. XANAX [Concomitant]
     Active Substance: ALPRAZOLAM
     Indication: ANXIETY
     Dosage: 2-3 A DAY
     Route: 048
  2. WARFARIN [Concomitant]
     Active Substance: WARFARIN
     Indication: THROMBOSIS
     Dosage: 2-3 A DAY
     Route: 048
     Dates: start: 201412
  3. DURAGESIC [Suspect]
     Active Substance: FENTANYL
     Indication: PAIN
     Route: 062
  4. DESYREL (TRAZADONE HCL) [Concomitant]
     Indication: SLEEP DISORDER
     Route: 048
  5. DURAGESIC [Suspect]
     Active Substance: FENTANYL
     Indication: PAIN
     Route: 062
  6. DESYREL (TRAZADONE HCL) [Concomitant]
     Indication: ANTIDEPRESSANT THERAPY
     Route: 048
  7. DURAGESIC [Suspect]
     Active Substance: FENTANYL
     Indication: CHRONIC OBSTRUCTIVE PULMONARY DISEASE
     Route: 062
  8. DURAGESIC [Suspect]
     Active Substance: FENTANYL
     Indication: CHRONIC OBSTRUCTIVE PULMONARY DISEASE
     Route: 062
  9. DURAGESIC [Suspect]
     Active Substance: FENTANYL
     Indication: PAIN
     Route: 062
  10. TRAMADOL [Concomitant]
     Active Substance: TRAMADOL
     Indication: PAIN
     Route: 048
  11. XANAX [Concomitant]
     Active Substance: ALPRAZOLAM
     Indication: SLEEP DISORDER
     Dosage: 2-3 A DAY
     Route: 048
  12. PERCOCET [Concomitant]
     Active Substance: ACETAMINOPHEN\OXYCODONE HYDROCHLORIDE
     Indication: PAIN
     Route: 048
  13. DURAGESIC [Suspect]
     Active Substance: FENTANYL
     Indication: CHRONIC OBSTRUCTIVE PULMONARY DISEASE
     Route: 062
  14. DURAGESIC [Suspect]
     Active Substance: FENTANYL
     Indication: CHRONIC OBSTRUCTIVE PULMONARY DISEASE
     Route: 062
  15. DURAGESIC [Suspect]
     Active Substance: FENTANYL
     Indication: PAIN
     Route: 062

REACTIONS (7)
  - Thrombosis [Not Recovered/Not Resolved]
  - Gait disturbance [Not Recovered/Not Resolved]
  - Drug effect incomplete [Not Recovered/Not Resolved]
  - Rash [Unknown]
  - Neuropathy peripheral [Not Recovered/Not Resolved]
  - Underdose [Unknown]
  - Visual acuity reduced [Not Recovered/Not Resolved]

NARRATIVE: CASE EVENT DATE: 201412
